FAERS Safety Report 10727400 (Version 1)
Quarter: 2015Q1

REPORT INFORMATION
  Report Type: Spontaneous
  Country: IT (occurrence: IT)
  Receive Date: 20150121
  Receipt Date: 20150121
  Transmission Date: 20150721
  Serious: Yes (Life-Threatening)
  Sender: FDA-Public Use
  Company Number: IT-BAYER-2015-004806

PATIENT
  Age: 86 Year
  Sex: Female

DRUGS (13)
  1. EUTIROX [Concomitant]
     Active Substance: LEVOTHYROXINE SODIUM
     Dosage: UNK
  2. CONGESCOR [Concomitant]
     Active Substance: BISOPROLOL
     Dosage: UNK
  3. MOVICOL [Concomitant]
     Active Substance: POLYETHYLENE GLYCOL 3350\POTASSIUM CHLORIDE\SODIUM BICARBONATE\SODIUM CHLORIDE
     Dosage: UNK
  4. TRIATEC [Concomitant]
     Active Substance: RAMIPRIL
     Dosage: UNK
  5. PLAVIX [Suspect]
     Active Substance: CLOPIDOGREL BISULFATE
     Indication: CEREBROVASCULAR ACCIDENT
     Dosage: 1 DF, DAILY DOSE
     Route: 048
     Dates: start: 20141204, end: 20150110
  6. LASIX [Concomitant]
     Active Substance: FUROSEMIDE
     Dosage: UNK
  7. LEDERFOLIN [Concomitant]
     Active Substance: LEUCOVORIN CALCIUM
     Dosage: UNK
  8. ZANTAC [Concomitant]
     Active Substance: RANITIDINE HYDROCHLORIDE
     Dosage: UNK
  9. NOVONORM [Concomitant]
     Active Substance: REPAGLINIDE
     Dosage: UNK
  10. KCL RETARD ZYMA [Concomitant]
     Dosage: UNK
  11. CARDIOASPIRIN [Suspect]
     Active Substance: ASPIRIN
     Dosage: 1 DF, DAILY DOSE
     Route: 048
     Dates: start: 20100101, end: 20150110
  12. GLUCOPHAGE [Concomitant]
     Active Substance: METFORMIN HYDROCHLORIDE
     Dosage: UNK
  13. ZOLOFT [Concomitant]
     Active Substance: SERTRALINE HYDROCHLORIDE
     Dosage: UNK

REACTIONS (2)
  - Cerebral thrombosis [Not Recovered/Not Resolved]
  - Drug ineffective [Not Recovered/Not Resolved]

NARRATIVE: CASE EVENT DATE: 20150110
